FAERS Safety Report 7128751-9 (Version None)
Quarter: 2010Q4

REPORT INFORMATION
  Report Type: 
  Country: None (occurrence: None)
  Receive Date: 20101130
  Receipt Date: 20101117
  Transmission Date: 20110411
  Serious: Yes (Other)
  Sender: FDA-Public Use
  Company Number: DE-ELI_LILLY_AND_COMPANY-DE201011004344

PATIENT
  Sex: Female

DRUGS (2)
  1. BYETTA [Suspect]
     Indication: DIABETES MELLITUS
     Dosage: 5 UG, UNKNOWN
     Route: 058
     Dates: start: 20101001
  2. CORTISON [Concomitant]

REACTIONS (6)
  - CHRONIC OBSTRUCTIVE PULMONARY DISEASE [None]
  - DYSPEPSIA [None]
  - DYSPNOEA [None]
  - NAUSEA [None]
  - OEDEMA PERIPHERAL [None]
  - WEIGHT DECREASED [None]
